FAERS Safety Report 7181758-8 (Version None)
Quarter: 2010Q4

REPORT INFORMATION
  Report Type: 
  Country: None (occurrence: None)
  Receive Date: 20101221
  Receipt Date: 20100429
  Transmission Date: 20110411
  Serious: No
  Sender: FDA-Public Use
  Company Number: US-AMGEN-KDL409589

PATIENT

DRUGS (2)
  1. ENBREL [Suspect]
     Indication: PSORIATIC ARTHROPATHY
     Dosage: 50 MG, QWK
     Route: 058
     Dates: start: 20040331
  2. ENBREL [Suspect]
     Indication: PSORIASIS

REACTIONS (10)
  - BACK PAIN [None]
  - BONE FRAGMENTATION [None]
  - BURNING SENSATION [None]
  - HEADACHE [None]
  - HYPOAESTHESIA [None]
  - JOINT INSTABILITY [None]
  - NERVE COMPRESSION [None]
  - PSORIASIS [None]
  - PSORIATIC ARTHROPATHY [None]
  - STRESS [None]
